FAERS Safety Report 5975569-6 (Version None)
Quarter: 2008Q4

REPORT INFORMATION
  Report Type: 
  Country: None (occurrence: None)
  Receive Date: 20081202
  Receipt Date: 20081104
  Transmission Date: 20090506
  Serious: No
  Sender: FDA-Public Use
  Company Number: US-JNJFOC-20081101303

PATIENT
  Age: 14 Year
  Sex: Male

DRUGS (5)
  1. INVEGA [Suspect]
     Route: 048
  2. INVEGA [Suspect]
     Route: 048
  3. INVEGA [Suspect]
     Indication: SCHIZOPHRENIA
     Route: 048
  4. WELLBUTRIN [Concomitant]
  5. STRATTERA [Concomitant]

REACTIONS (1)
  - BLOOD PROLACTIN INCREASED [None]
